FAERS Safety Report 9054119 (Version 1)
Quarter: 2013Q1

REPORT INFORMATION
  Report Type: Spontaneous
  Country: BR (occurrence: BR)
  Receive Date: 20130208
  Receipt Date: 20130208
  Transmission Date: 20140127
  Serious: Yes (Death, Other)
  Sender: FDA-Public Use
  Company Number: BR-PFIZER INC-2013050588

PATIENT
  Age: 83 Year
  Sex: Male

DRUGS (1)
  1. DETRUSITOL LA [Suspect]
     Dosage: 4 MG, 1X/DAY
     Route: 048
     Dates: start: 20100305

REACTIONS (1)
  - Prostate cancer [Fatal]
